FAERS Safety Report 12408925 (Version 1)
Quarter: 2016Q2

REPORT INFORMATION
  Report Type: Spontaneous
  Country: ES (occurrence: ES)
  Receive Date: 20160526
  Receipt Date: 20160526
  Transmission Date: 20160815
  Serious: Yes (Hospitalization, Other)
  Sender: FDA-Public Use
  Company Number: ES-PFIZER INC-2016213983

PATIENT
  Age: 68 Year
  Sex: Female

DRUGS (3)
  1. TACROLIMUS. [Suspect]
     Active Substance: TACROLIMUS
     Indication: IMMUNOSUPPRESSION
     Dosage: 4 MG, DAILY (4MG/24H)
  2. MOFETIL MYCOPHENOLATE [Concomitant]
     Indication: IMMUNOSUPPRESSION
     Dosage: 500 MG, 2X/DAY (500 MG/12 H)
  3. METHYLPREDNISOLONE SODIUM SUCCINATE. [Suspect]
     Active Substance: METHYLPREDNISOLONE SODIUM SUCCINATE
     Indication: IMMUNOSUPPRESSION
     Dosage: 4 MG, DAILY (4MG/24H)

REACTIONS (1)
  - Posterior reversible encephalopathy syndrome [Recovered/Resolved]
